FAERS Safety Report 10155193 (Version 1)
Quarter: 2014Q2

REPORT INFORMATION
  Report Type: Spontaneous
  Country: US (occurrence: US)
  Receive Date: 20140506
  Receipt Date: 20140506
  Transmission Date: 20141212
  Serious: No
  Sender: FDA-Public Use
  Company Number: US-009507513-1404USA015421

PATIENT
  Sex: Female

DRUGS (1)
  1. DR. SCHOLL^S ULTRA THIN CORN REMOVER [Suspect]
     Indication: SKIN LESION EXCISION
     Dosage: UNK UNK, UNKNOWN
     Route: 061

REACTIONS (2)
  - Drug ineffective [Unknown]
  - Product quality issue [Unknown]
